FAERS Safety Report 7440388-0 (Version None)
Quarter: 2011Q2

REPORT INFORMATION
  Report Type: 
  Country: None (occurrence: None)
  Receive Date: 20110427
  Receipt Date: 20110426
  Transmission Date: 20111010
  Serious: No
  Sender: FDA-Public Use
  Company Number: US-PFIZER INC-2011090030

PATIENT
  Sex: Female
  Weight: 68.934 kg

DRUGS (2)
  1. PROTONIX [Suspect]
     Indication: ABDOMINAL DISCOMFORT
     Dosage: 40 MG, DAILY
     Route: 048
     Dates: start: 20030101
  2. LIPITOR [Suspect]
     Indication: BLOOD CHOLESTEROL INCREASED
     Dosage: 10 MG, DAILY
     Route: 048
     Dates: start: 20030101

REACTIONS (3)
  - HYPERSENSITIVITY [None]
  - SINUS DISORDER [None]
  - SNEEZING [None]
